FAERS Safety Report 9243045 (Version 5)
Quarter: 2016Q3

REPORT INFORMATION
  Report Type: Spontaneous
  Country: US (occurrence: US)
  Receive Date: 20130419
  Receipt Date: 20160803
  Transmission Date: 20161109
  Serious: Yes (Other)
  Sender: FDA-Public Use
  Company Number: US-JNJFOC-20120411950

PATIENT
  Age: 31 Year
  Sex: Male
  Weight: 77.11 kg

DRUGS (6)
  1. COLCRYS [Concomitant]
     Active Substance: COLCHICINE
     Indication: ANTIINFLAMMATORY THERAPY
     Route: 065
     Dates: start: 2011
  2. ROXICET [Concomitant]
     Active Substance: ACETAMINOPHEN\OXYCODONE HYDROCHLORIDE
     Indication: PAIN
     Route: 065
     Dates: start: 2011
  3. LEVAQUIN [Suspect]
     Active Substance: LEVOFLOXACIN
     Indication: BACTERIAL INFECTION
     Route: 048
     Dates: start: 20110620, end: 20110630
  4. IBUPROFEN. [Concomitant]
     Active Substance: IBUPROFEN
     Indication: PAIN
     Route: 065
     Dates: start: 2011
  5. LEVAQUIN [Suspect]
     Active Substance: LEVOFLOXACIN
     Indication: CHONDRITIS
     Route: 048
     Dates: start: 20110620, end: 20110630
  6. MELOXICAM. [Concomitant]
     Active Substance: MELOXICAM
     Indication: COSTOCHONDRITIS
     Route: 065
     Dates: start: 200808, end: 2011

REACTIONS (4)
  - Neuropathy peripheral [Not Recovered/Not Resolved]
  - Arthralgia [Unknown]
  - Costochondritis [Unknown]
  - Muscle twitching [Unknown]

NARRATIVE: CASE EVENT DATE: 20110621
